FAERS Safety Report 8397014 (Version 7)
Quarter: 2014Q1

REPORT INFORMATION
  Report Type: Spontaneous
  Country: CA (occurrence: CA)
  Receive Date: 20120209
  Receipt Date: 20140326
  Transmission Date: 20141002
  Serious: Yes (Hospitalization)
  Sender: FDA-Public Use
  Company Number: CA-US-EMD SERONO, INC.-7110887

PATIENT
  Age: 41 Year
  Sex: Female
  Weight: 44 kg

DRUGS (7)
  1. REBIF [Suspect]
     Indication: RELAPSING-REMITTING MULTIPLE SCLEROSIS
     Route: 058
     Dates: start: 20060329, end: 20120130
  2. XATRAL                             /00975301/ [Concomitant]
     Indication: PRODUCT USED FOR UNKNOWN INDICATION
  3. OXAZEPAM [Concomitant]
     Indication: PRODUCT USED FOR UNKNOWN INDICATION
  4. NEUROTIN                           /00949202/ [Concomitant]
     Indication: PRODUCT USED FOR UNKNOWN INDICATION
  5. BACLOFEN [Concomitant]
     Indication: PRODUCT USED FOR UNKNOWN INDICATION
  6. CESAMET [Concomitant]
     Indication: PRODUCT USED FOR UNKNOWN INDICATION
  7. CELECOXIB [Concomitant]
     Indication: PRODUCT USED FOR UNKNOWN INDICATION

REACTIONS (27)
  - Thrombotic thrombocytopenic purpura [Unknown]
  - Haemolytic uraemic syndrome [Unknown]
  - Thrombotic microangiopathy [Unknown]
  - Microangiopathic haemolytic anaemia [Recovering/Resolving]
  - Posterior reversible encephalopathy syndrome [Recovering/Resolving]
  - Grand mal convulsion [Unknown]
  - Convulsion [Unknown]
  - Cardiomyopathy [Unknown]
  - Left ventricular dysfunction [Recovered/Resolved]
  - Renal failure chronic [Unknown]
  - Blood pressure increased [Unknown]
  - Blood creatine phosphokinase increased [Unknown]
  - Blood lactate dehydrogenase increased [Unknown]
  - Blood creatinine increased [Unknown]
  - Thrombocytopenia [Recovering/Resolving]
  - Pyrexia [Unknown]
  - Multiple sclerosis relapse [Unknown]
  - White blood cell count decreased [Unknown]
  - Weight decreased [Unknown]
  - Confusional state [Unknown]
  - Muscular weakness [Unknown]
  - Nausea [Unknown]
  - Vomiting [Unknown]
  - Productive cough [Unknown]
  - Abdominal discomfort [Unknown]
  - Bacteraemia [Unknown]
  - Headache [Unknown]
